FAERS Safety Report 21889800 (Version 8)
Quarter: 2023Q4

REPORT INFORMATION
  Report Type: Spontaneous
  Country: US (occurrence: US)
  Receive Date: 20230120
  Receipt Date: 20231106
  Transmission Date: 20240110
  Serious: Yes (Other)
  Sender: FDA-Public Use
  Company Number: US-PFIZER INC-PV202300011801

PATIENT
  Age: 63 Year
  Sex: Female

DRUGS (3)
  1. IBRANCE [Suspect]
     Active Substance: PALBOCICLIB
     Indication: Breast cancer stage IV
     Dosage: 125 MG
  2. IBRANCE [Suspect]
     Active Substance: PALBOCICLIB
     Dosage: TAKE ONE TABLET FOR 21 CONSECUTIVE DAYS THEN STOP FOR 7 CONSECUTIVE DAYS, AVOID GRAPEFRUIT PRODUCTS,
     Route: 048
  3. PROTONIX [Concomitant]
     Active Substance: PANTOPRAZOLE SODIUM
     Indication: Metastases to bone
     Dosage: TAKE ONE TAB BY MOUTH TWICE DAILY 30 MINUTES BEFORE MEALS (BREAKFAST AND DINNER)
     Route: 048

REACTIONS (4)
  - Dyspnoea [Unknown]
  - COVID-19 [Unknown]
  - Asthenia [Unknown]
  - Nausea [Unknown]
